FAERS Safety Report 6414135-5 (Version None)
Quarter: 2009Q4

REPORT INFORMATION
  Report Type: 
  Country: None (occurrence: None)
  Receive Date: 20091026
  Receipt Date: 20091015
  Transmission Date: 20100525
  Serious: Yes (Hospitalization, Other)
  Sender: FDA-Public Use
  Company Number: US-MERCK-0610USA14988

PATIENT
  Age: 72 Year
  Sex: Female
  Weight: 34 kg

DRUGS (3)
  1. FOSAMAX [Suspect]
     Indication: OSTEOPOROSIS
     Route: 048
     Dates: start: 19990514, end: 20011001
  2. FOSAMAX [Suspect]
     Route: 048
     Dates: start: 20011001, end: 20050601
  3. FOSAMAX [Suspect]
     Route: 048
     Dates: end: 20010815

REACTIONS (48)
  - ACTIVATED PARTIAL THROMBOPLASTIN TIME PROLONGED [None]
  - ANAEMIA OF CHRONIC DISEASE [None]
  - BRONCHITIS [None]
  - BURSITIS [None]
  - CARDIAC FAILURE CONGESTIVE [None]
  - CHRONIC OBSTRUCTIVE PULMONARY DISEASE [None]
  - CLOSTRIDIUM DIFFICILE COLITIS [None]
  - COLITIS ISCHAEMIC [None]
  - COMPRESSION FRACTURE [None]
  - DEAFNESS [None]
  - DEPRESSION [None]
  - DIARRHOEA [None]
  - DRUG INEFFECTIVE [None]
  - FALL [None]
  - GASTROENTERITIS [None]
  - GLAUCOMA [None]
  - GRANULOMA [None]
  - HEAD INJURY [None]
  - HIP FRACTURE [None]
  - HYPERGAMMAGLOBULINAEMIA BENIGN MONOCLONAL [None]
  - HYPOTENSION [None]
  - HYPOTHYROIDISM [None]
  - ILIOTIBIAL BAND SYNDROME [None]
  - INFLUENZA LIKE ILLNESS [None]
  - INTERSTITIAL LUNG DISEASE [None]
  - JAW DISORDER [None]
  - LUNG INFILTRATION [None]
  - MALNUTRITION [None]
  - NAUSEA [None]
  - OSTEOMYELITIS [None]
  - OSTEONECROSIS [None]
  - PNEUMONIA [None]
  - PNEUMONIA CRYPTOCOCCAL [None]
  - RECTAL HAEMORRHAGE [None]
  - REFLUX OESOPHAGITIS [None]
  - SCOLIOSIS [None]
  - SINUS DISORDER [None]
  - SINUSITIS [None]
  - SKIN LESION [None]
  - SPINAL OSTEOARTHRITIS [None]
  - STAPHYLOCOCCAL INFECTION [None]
  - SYNCOPE [None]
  - SYSTEMIC SCLEROSIS [None]
  - UPPER RESPIRATORY TRACT INFECTION [None]
  - URINARY TRACT INFECTION [None]
  - VERTIGO [None]
  - WEIGHT DECREASED [None]
  - WOUND DEHISCENCE [None]
